FAERS Safety Report 7943689-2 (Version None)
Quarter: 2011Q4

REPORT INFORMATION
  Report Type: 
  Country: None (occurrence: None)
  Receive Date: 20111128
  Receipt Date: 20111121
  Transmission Date: 20120403
  Serious: Yes (Hospitalization, Other)
  Sender: FDA-Public Use
  Company Number: US-BAYER-US-2007-032522

PATIENT
  Age: 44 Year
  Sex: Female

DRUGS (10)
  1. TOPIRAMATE [Concomitant]
     Indication: HEADACHE
     Dosage: 50 MG, 3X/DAY
  2. BETASERON [Suspect]
     Dosage: 8 MIU, QOD
     Route: 058
     Dates: start: 20080210, end: 20080809
  3. BETASERON [Suspect]
     Dosage: 8 MIU, QOD
     Route: 058
     Dates: start: 20080927, end: 20090202
  4. TRAMADOL HCL [Concomitant]
  5. BETASERON [Suspect]
     Dosage: 8 MIU, QOD
     Route: 058
     Dates: start: 20010715
  6. IBUPROFEN [Concomitant]
  7. ANTI-SMOKING AGENTS [Concomitant]
  8. BETASERON [Suspect]
     Indication: RELAPSING-REMITTING MULTIPLE SCLEROSIS
     Dosage: 8 MIU, QOD
     Route: 058
     Dates: start: 20040825, end: 20071112
  9. BETASERON [Suspect]
     Dosage: 8 MIU, QOD
     Route: 058
     Dates: start: 20090415, end: 20091101
  10. DEPAKOTE [Concomitant]

REACTIONS (5)
  - WOUND DEHISCENCE [None]
  - NEPHROLITHIASIS [None]
  - EMPHYSEMA [None]
  - GENITAL HAEMORRHAGE [None]
  - GAIT DISTURBANCE [None]
